FAERS Safety Report 16389286 (Version 1)
Quarter: 2019Q2

REPORT INFORMATION
  Report Type: Spontaneous
  Country: US (occurrence: US)
  Receive Date: 20190604
  Receipt Date: 20190604
  Transmission Date: 20190711
  Serious: No
  Sender: FDA-Public Use
  Company Number: US-GLAXOSMITHKLINE-US2019098879

PATIENT
  Age: 71 Year
  Sex: Male

DRUGS (1)
  1. EXCEDRIN MIGRAINE [Suspect]
     Active Substance: ACETAMINOPHEN\ASPIRIN\CAFFEINE
     Indication: MIGRAINE
     Dosage: TOOK MORE THAN 2 IN A 24 HOUR PERIOD
     Route: 048
     Dates: start: 20190529

REACTIONS (3)
  - Overdose [Unknown]
  - Prescribed overdose [Unknown]
  - Off label use [Unknown]
